FAERS Safety Report 6641521-0 (Version None)
Quarter: 2010Q1

REPORT INFORMATION
  Report Type: 
  Country: None (occurrence: None)
  Receive Date: 20100317
  Receipt Date: 20100317
  Transmission Date: 20100710
  Serious: Yes (Other)
  Sender: FDA-Public Use
  Company Number: None

PATIENT
  Age: 44 Year
  Sex: Female
  Weight: 66.7 kg

DRUGS (5)
  1. NAFCILLIN [Suspect]
     Indication: PLATELET COUNT DECREASED
     Dosage: 2G Q4HOURS IV
     Route: 042
     Dates: start: 20091119, end: 20091201
  2. MAGNESIUM [Concomitant]
  3. POTASSIUM [Concomitant]
  4. ALPRAZOLAM [Concomitant]
  5. OXYCODONE [Concomitant]

REACTIONS (2)
  - BLOOD BILIRUBIN INCREASED [None]
  - PLATELET COUNT DECREASED [None]
